FAERS Safety Report 14140548 (Version 1)
Quarter: 2017Q4

REPORT INFORMATION
  Report Type: Spontaneous
  Country: US (occurrence: None)
  Receive Date: 20171027
  Receipt Date: 20171027
  Transmission Date: 20180321
  Serious: Yes (Hospitalization)
  Sender: FDA-Public Use
  Company Number: None

PATIENT
  Age: 56 Year
  Sex: Female

DRUGS (12)
  1. PRENATAL VITAMINS [Concomitant]
     Active Substance: VITAMINS
  2. CETIRIZINE [Concomitant]
     Active Substance: CETIRIZINE HYDROCHLORIDE
  3. FUROSEMIDE. [Concomitant]
     Active Substance: FUROSEMIDE
  4. ADCIRCA [Suspect]
     Active Substance: TADALAFIL
     Indication: COR PULMONALE ACUTE
     Route: 048
     Dates: start: 20170321, end: 20171027
  5. OPSUMIT [Suspect]
     Active Substance: MACITENTAN
     Indication: COR PULMONALE ACUTE
     Route: 048
     Dates: start: 20170127, end: 20171027
  6. BREO ELLIPTA [Concomitant]
     Active Substance: FLUTICASONE FUROATE\VILANTEROL TRIFENATATE
  7. MAGNESIUM [Concomitant]
     Active Substance: MAGNESIUM
  8. MILRINONE [Concomitant]
     Active Substance: MILRINONE
  9. WARFARIN [Concomitant]
     Active Substance: WARFARIN
  10. MONTELUKAST [Concomitant]
     Active Substance: MONTELUKAST SODIUM
  11. METOLAZONE. [Concomitant]
     Active Substance: METOLAZONE
  12. TYVASO [Concomitant]
     Active Substance: TREPROSTINIL

REACTIONS (2)
  - Pulmonary arterial hypertension [None]
  - Disease progression [None]

NARRATIVE: CASE EVENT DATE: 20170914
